FAERS Safety Report 4494636-X (Version None)
Quarter: 2004Q4

REPORT INFORMATION
  Report Type: 
  Country: None (occurrence: None)
  Receive Date: 20041103
  Receipt Date: 20041019
  Transmission Date: 20050328
  Serious: Yes (Hospitalization)
  Sender: FDA-Public Use
  Company Number: K200401632

PATIENT
  Age: 74 Year
  Sex: Male

DRUGS (9)
  1. ALTACE [Suspect]
     Indication: CARDIAC FAILURE
     Dosage: 5MG, BID ORAL
     Route: 048
     Dates: start: 20040716, end: 20040915
  2. SPIRONOLACTONE [Suspect]
     Indication: CARDIAC FAILURE
     Dosage: 25 MG, QD, ORAL
     Route: 048
     Dates: start: 20040716, end: 20040915
  3. AMIODARONE(AMIODARONE) 200MG [Suspect]
     Indication: ATRIAL FIBRILLATION
     Dosage: 200 MG, QD, ORAL
     Route: 048
     Dates: start: 20040716, end: 20040915
  4. DIGOXIN [Suspect]
     Indication: ATRIAL FIBRILLATION
     Dosage: 250 UG, QD, ORAL
     Route: 048
     Dates: start: 20040716, end: 20040915
  5. BUMETANIDE [Concomitant]
  6. GLICLAZIDE (GLICLAZIDE) [Concomitant]
  7. METFORMIN HCL [Concomitant]
  8. ATORVASTATIN (ATORVASTATIN) [Concomitant]
  9. WARFARIN SODIUM [Concomitant]

REACTIONS (4)
  - BLOOD POTASSIUM INCREASED [None]
  - CARDIOACTIVE DRUG LEVEL INCREASED [None]
  - HEART RATE DECREASED [None]
  - HEART RATE INCREASED [None]
